FAERS Safety Report 22134448 (Version 1)
Quarter: 2023Q1

REPORT INFORMATION
  Report Type: Spontaneous
  Country: US (occurrence: US)
  Receive Date: 20230324
  Receipt Date: 20230324
  Transmission Date: 20230417
  Serious: No
  Sender: FDA-Public Use
  Company Number: US-STRIDES ARCOLAB LIMITED-2022SP007600

PATIENT
  Age: 3 Year
  Sex: Male

DRUGS (2)
  1. AMPICILLIN TRIHYDRATE [Suspect]
     Active Substance: AMPICILLIN TRIHYDRATE
     Indication: Lactobacillus infection
     Dosage: UNK
     Route: 065
  2. PIPERACILLIN SODIUM\TAZOBACTAM SODIUM [Concomitant]
     Active Substance: PIPERACILLIN SODIUM\TAZOBACTAM SODIUM
     Indication: Lactobacillus infection
     Dosage: UNK
     Route: 065

REACTIONS (1)
  - Off label use [Unknown]
